FAERS Safety Report 4816260-9 (Version None)
Quarter: 2005Q4

REPORT INFORMATION
  Report Type: 
  Country: None (occurrence: None)
  Receive Date: 20051026
  Receipt Date: 20051010
  Transmission Date: 20060501
  Serious: Yes (Congenital Anomaly)
  Sender: FDA-Public Use
  Company Number: 8012661

PATIENT

DRUGS (4)
  1. KEPPRA [Suspect]
     Dosage: TRP
  2. TOPAMAX [Suspect]
     Dosage: TRP
  3. CLONAZEPAM [Suspect]
     Dosage: TRP
  4. CARBAMAZEPINE [Suspect]
     Dosage: TRP

REACTIONS (2)
  - DRUG EXPOSURE DURING PREGNANCY [None]
  - HIP DYSPLASIA [None]
